FAERS Safety Report 10483497 (Version 1)
Quarter: 2014Q3

REPORT INFORMATION
  Report Type: Spontaneous
  Country: GB (occurrence: None)
  Receive Date: 20140926
  Receipt Date: 20140926
  Transmission Date: 20150326
  Serious: Yes (Disabling)
  Sender: FDA-Public Use
  Company Number: GB-H14001-14-00654

PATIENT
  Age: 49 Year
  Sex: Female

DRUGS (3)
  1. METRONIDAZOLE (METRONIDAZOLE) [Concomitant]
     Active Substance: METRONIDAZOLE
  2. OMEPRAZOLE (OMEPRAZOLE) [Concomitant]
     Active Substance: OMEPRAZOLE
  3. CIPROFLOXACIN. [Suspect]
     Active Substance: CIPROFLOXACIN
     Indication: DIVERTICULITIS
     Route: 042
     Dates: start: 20140825, end: 20140829

REACTIONS (10)
  - Hyperacusis [None]
  - Dizziness [None]
  - Disturbance in attention [None]
  - Nausea [None]
  - Headache [None]
  - Memory impairment [None]
  - Photophobia [None]
  - Vision blurred [None]
  - Confusional state [None]
  - Dysarthria [None]
